FAERS Safety Report 4778895-1 (Version None)
Quarter: 2005Q3

REPORT INFORMATION
  Report Type: 
  Country: None (occurrence: None)
  Receive Date: 20050922
  Receipt Date: 20050913
  Transmission Date: 20060218
  Serious: Yes (Other)
  Sender: FDA-Public Use
  Company Number: 2005-09-0734

PATIENT

DRUGS (4)
  1. IMDUR [Suspect]
     Dosage: ORAL
     Route: 048
  2. IMDUR [Suspect]
  3. FLOMAX [Suspect]
     Dosage: ORAL
     Route: 048
  4. FLOMAX [Suspect]

REACTIONS (2)
  - RESPIRATORY DISTRESS [None]
  - WRONG TECHNIQUE IN DRUG USAGE PROCESS [None]
